FAERS Safety Report 4495863-8 (Version None)
Quarter: 2004Q4

REPORT INFORMATION
  Report Type: 
  Country: None (occurrence: None)
  Receive Date: 20041108
  Receipt Date: 20041029
  Transmission Date: 20050328
  Serious: Yes (Other)
  Sender: FDA-Public Use
  Company Number: PHEH2004US11709

PATIENT
  Age: 74 Year
  Sex: Male
  Weight: 90 kg

DRUGS (4)
  1. GLEEVEC [Suspect]
     Indication: GASTROINTESTINAL STROMAL TUMOUR
     Dosage: 800 MG, QD
     Route: 048
     Dates: start: 20010301, end: 20040426
  2. GLEEVEC [Suspect]
     Dosage: 400MG, 300MG, 200MG, 100MG QD
     Dates: start: 20010426
  3. AMBIEN [Concomitant]
     Dosage: 5 MG, QD
     Route: 048
  4. NEUPOGEN [Concomitant]
     Dosage: 300 MG, X2 PER WEEK

REACTIONS (8)
  - ACUTE MYELOID LEUKAEMIA [None]
  - ANAEMIA [None]
  - FATIGUE [None]
  - NEUTROPENIA [None]
  - PERICARDIAL DRAINAGE [None]
  - PERICARDIAL EFFUSION [None]
  - PLEURAL EFFUSION [None]
  - THROMBOCYTOPENIA [None]
